FAERS Safety Report 10884234 (Version 1)
Quarter: 2015Q1

REPORT INFORMATION
  Report Type: Spontaneous
  Country: US (occurrence: None)
  Receive Date: 20150227
  Receipt Date: 20150227
  Transmission Date: 20150721
  Serious: Yes (Death)
  Sender: FDA-Public Use
  Company Number: FK201500922

PATIENT
  Age: 89 Year
  Sex: Female

DRUGS (3)
  1. VANCOMYCIN (MANUFACTURER UNKNOWN) (VANCOMYCIN) (VANCOMYCIN) [Suspect]
     Active Substance: VANCOMYCIN
     Indication: SEPTIC SHOCK
  2. NOREPHINEPHRINE (NOREPHINEPHRINE) [Concomitant]
  3. CEFEPIME [Concomitant]
     Active Substance: CEFEPIME\CEFEPIME HYDROCHLORIDE

REACTIONS (1)
  - Enterococcus test positive [None]
